FAERS Safety Report 16061395 (Version 1)
Quarter: 2019Q1

REPORT INFORMATION
  Report Type: Spontaneous
  Country: US (occurrence: US)
  Receive Date: 20190312
  Receipt Date: 20190312
  Transmission Date: 20190418
  Serious: No
  Sender: FDA-Public Use
  Company Number: US-ROCHE-2218876

PATIENT
  Age: 37 Year
  Sex: Male

DRUGS (11)
  1. IRINOTECAN [Suspect]
     Active Substance: IRINOTECAN
     Indication: COLON CANCER STAGE IV
     Route: 065
     Dates: start: 20181012
  2. NYSTATIN. [Concomitant]
     Active Substance: NYSTATIN
     Indication: RASH
     Dosage: 1 APPLICATION TOPICALLY AS NEEDED WITH OSTOMY CHANGES
     Route: 061
     Dates: start: 20180806
  3. AVASTIN [Suspect]
     Active Substance: BEVACIZUMAB
     Indication: COLON CANCER STAGE IV
     Dosage: FOLFOX PLUS BEVACIZUMAB FOR 5 CYCLES
     Route: 065
     Dates: start: 20180803, end: 20180928
  4. IBUPROFEN. [Concomitant]
     Active Substance: IBUPROFEN
     Indication: PAIN
     Dosage: AS NEEDED FOR PAIN
     Route: 048
     Dates: start: 20180723
  5. FLUOROURACIL. [Suspect]
     Active Substance: FLUOROURACIL
     Indication: COLON CANCER STAGE IV
     Dosage: ONGOING: UNKNOWN
     Route: 065
     Dates: start: 20181012
  6. MESALAZINE [Concomitant]
     Active Substance: MESALAMINE
     Dosage: LEFT HIS MEDICATIONS IN CHINA
     Route: 048
  7. LEUCOVORIN. [Suspect]
     Active Substance: LEUCOVORIN
     Indication: COLON CANCER STAGE IV
     Route: 065
     Dates: start: 20181012
  8. ZOLPIDEM [Concomitant]
     Active Substance: ZOLPIDEM\ZOLPIDEM TARTRATE
     Dosage: AT BEDTIME AS NEEDED
     Route: 048
     Dates: start: 20180817
  9. DEXAMETHASONE. [Concomitant]
     Active Substance: DEXAMETHASONE
     Route: 048
     Dates: start: 20180831
  10. LOPERAMIDE [Concomitant]
     Active Substance: LOPERAMIDE
     Route: 048
     Dates: start: 20181012
  11. AVASTIN [Suspect]
     Active Substance: BEVACIZUMAB
     Dosage: FOLFIRI + BEVACIZUMAB ;ONGOING: UNKNOWN
     Route: 065
     Dates: start: 20181012

REACTIONS (16)
  - Nausea [Recovered/Resolved]
  - Rash erythematous [Unknown]
  - Pigmentation disorder [Unknown]
  - Skin discolouration [Unknown]
  - Tongue discolouration [Unknown]
  - Skin exfoliation [Unknown]
  - Vomiting [Unknown]
  - Tongue pigmentation [Unknown]
  - Decreased appetite [Unknown]
  - Tongue pruritus [Unknown]
  - Fatigue [Unknown]
  - Urine output decreased [Recovered/Resolved]
  - Malaise [Unknown]
  - Pruritus [Unknown]
  - Gastrointestinal stoma output decreased [Unknown]
  - Drug ineffective [Unknown]

NARRATIVE: CASE EVENT DATE: 20181012
